FAERS Safety Report 10177187 (Version 1)
Quarter: 2014Q2

REPORT INFORMATION
  Report Type: Spontaneous
  Country: TH (occurrence: TH)
  Receive Date: 20140516
  Receipt Date: 20140516
  Transmission Date: 20141212
  Serious: Yes (Other)
  Sender: FDA-Public Use
  Company Number: TH-AMGEN-THASP2014036177

PATIENT
  Age: 50 Year
  Sex: Male

DRUGS (1)
  1. ENBREL [Suspect]
     Indication: PRODUCT USED FOR UNKNOWN INDICATION
     Dosage: 50 MG, ONCE/WEEK
     Route: 058
     Dates: start: 201105

REACTIONS (3)
  - Scrotal erythema [Recovered/Resolved]
  - Scrotal disorder [Recovered/Resolved]
  - Sarcoidosis [Recovered/Resolved]
